FAERS Safety Report 13344782 (Version 4)
Quarter: 2017Q3

REPORT INFORMATION
  Report Type: Report from Study
  Country: US (occurrence: US)
  Receive Date: 20170317
  Receipt Date: 20170718
  Transmission Date: 20171127
  Serious: Yes (Hospitalization, Other)
  Sender: FDA-Public Use
  Company Number: US-ROCHE-1906532

PATIENT
  Age: 87 Year
  Sex: Male
  Weight: 79.45 kg

DRUGS (6)
  1. ESBRIET [Suspect]
     Active Substance: PIRFENIDONE
     Dosage: 3 CAPSULES THREE TIMES PER DAY
     Route: 048
  2. GEMZAR [Concomitant]
     Active Substance: GEMCITABINE HYDROCHLORIDE
     Indication: ANGIOSARCOMA
     Route: 065
  3. ESBRIET [Suspect]
     Active Substance: PIRFENIDONE
     Dosage: REGULAR TITRATION SCHEDULE
     Route: 048
  4. ESBRIET [Suspect]
     Active Substance: PIRFENIDONE
     Dosage: 2 CAPSULE THREE TIMES PER DAY FOR 1 DAY
     Route: 048
     Dates: end: 201703
  5. ESBRIET [Suspect]
     Active Substance: PIRFENIDONE
     Indication: IDIOPATHIC PULMONARY FIBROSIS
     Dosage: 1 CAPSULE 3 TIMES PER DAY FOR ONE DAY
     Route: 048
     Dates: start: 20170309
  6. ESBRIET [Suspect]
     Active Substance: PIRFENIDONE
     Route: 048
     Dates: end: 20170324

REACTIONS (11)
  - Fall [Unknown]
  - Accidental overdose [Unknown]
  - Urinary retention [Not Recovered/Not Resolved]
  - Dehydration [Recovered/Resolved]
  - Nausea [Unknown]
  - Blood pressure decreased [Recovered/Resolved]
  - Hallucination [Recovered/Resolved]
  - Dizziness [Unknown]
  - Neoplasm malignant [Unknown]
  - Dizziness [Not Recovered/Not Resolved]
  - Malaise [Unknown]

NARRATIVE: CASE EVENT DATE: 20170324
